FAERS Safety Report 21844372 (Version 1)
Quarter: 2023Q1

REPORT INFORMATION
  Report Type: Spontaneous
  Country: US (occurrence: None)
  Receive Date: 20230110
  Receipt Date: 20230110
  Transmission Date: 20230417
  Serious: No
  Sender: FDA-Public Use
  Company Number: None

PATIENT
  Age: 66 Year
  Sex: Female
  Weight: 85.5 kg

DRUGS (4)
  1. EZETIMIBE [Suspect]
     Active Substance: EZETIMIBE
     Indication: Hyperlipidaemia
     Dosage: OTHER QUANTITY : 1 TABLET(S);?FREQUENCY : DAILY;?
     Route: 048
     Dates: start: 20220502, end: 20221016
  2. XIIDRA [Suspect]
     Active Substance: LIFITEGRAST
  3. CHICKEN EGG WHOLE [Suspect]
     Active Substance: EGG
  4. EGG [Suspect]
     Active Substance: EGG

REACTIONS (5)
  - Mucous stools [None]
  - Eye discharge [None]
  - Giant papillary conjunctivitis [None]
  - Food allergy [None]
  - Gastrointestinal pain [None]

NARRATIVE: CASE EVENT DATE: 20221016
